FAERS Safety Report 17810684 (Version 2)
Quarter: 2020Q2

REPORT INFORMATION
  Report Type: Spontaneous
  Country: BR (occurrence: BR)
  Receive Date: 20200521
  Receipt Date: 20200526
  Transmission Date: 20200714
  Serious: Yes (Other)
  Sender: FDA-Public Use
  Company Number: BR-009507513-1905BRA000679

PATIENT
  Sex: Female
  Weight: 53 kg

DRUGS (1)
  1. IMPLANON NXT [Suspect]
     Active Substance: ETONOGESTREL
     Indication: CONTRACEPTION
     Dosage: IMPLANT, FOR 3 YEARS
     Route: 059
     Dates: start: 20180917

REACTIONS (7)
  - Self esteem decreased [Unknown]
  - Mood altered [Unknown]
  - Hypersensitivity vasculitis [Recovered/Resolved with Sequelae]
  - Rash macular [Not Recovered/Not Resolved]
  - Body dysmorphic disorder [Unknown]
  - Skin discolouration [Not Recovered/Not Resolved]
  - Drug hypersensitivity [Recovered/Resolved with Sequelae]

NARRATIVE: CASE EVENT DATE: 201809
